FAERS Safety Report 4981503-8 (Version None)
Quarter: 2006Q2

REPORT INFORMATION
  Report Type: 
  Country: None (occurrence: None)
  Receive Date: 20060424
  Receipt Date: 20060104
  Transmission Date: 20061013
  Serious: Yes (Hospitalization)
  Sender: FDA-Public Use
  Company Number: US-MERCK-0601USA00531

PATIENT
  Age: 45 Year
  Sex: Female
  Weight: 45 kg

DRUGS (8)
  1. VIOXX [Suspect]
     Indication: MUSCLE INJURY
     Route: 048
     Dates: start: 20031203, end: 20031210
  2. CALTRATE [Concomitant]
     Indication: HYPOVITAMINOSIS
     Route: 065
     Dates: start: 20010101
  3. ECOTRIN [Concomitant]
     Indication: PROPHYLAXIS
     Route: 065
     Dates: start: 20010101
  4. FOLIC ACID [Concomitant]
     Indication: PROPHYLAXIS
     Route: 065
     Dates: start: 20010101
  5. LIPITOR [Concomitant]
     Indication: CORONARY ARTERY DISEASE
     Route: 065
     Dates: start: 20010101
  6. LIPITOR [Concomitant]
     Indication: BLOOD CHOLESTEROL INCREASED
     Route: 065
     Dates: start: 20010101
  7. TOPROL-XL [Concomitant]
     Route: 065
     Dates: start: 20020101
  8. NEURONTIN [Concomitant]
     Indication: PAIN
     Route: 065

REACTIONS (2)
  - CARDIAC DISORDER [None]
  - MYOCARDIAL INFARCTION [None]
